FAERS Safety Report 7560335-0 (Version None)
Quarter: 2011Q2

REPORT INFORMATION
  Report Type: 
  Country: None (occurrence: None)
  Receive Date: 20110525
  Receipt Date: 20110315
  Transmission Date: 20111010
  Serious: No
  Sender: FDA-Public Use
  Company Number: 323842

PATIENT
  Age: 70 Year
  Sex: Female

DRUGS (8)
  1. HYDROCODONE (HYDROCODONE) [Concomitant]
  2. ONDANSETRON [Concomitant]
  3. CARISOPRODOL (CARISOPRODOL) [Concomitant]
  4. NEXIUM [Concomitant]
  5. GABAPENTIN [Concomitant]
  6. VICTOZA [Suspect]
     Indication: PRODUCT USED FOR UNKNOWN INDICATION
     Dosage: 0.6 MG, QD, SUBCUTANEOUS, 1.2 MG, QD, 0.6 MG, QD
     Route: 058
     Dates: start: 20101201
  7. TIZANIDINE HCL [Concomitant]
  8. ALPRAZOLAM [Concomitant]

REACTIONS (2)
  - MALAISE [None]
  - INJECTION SITE REACTION [None]
